FAERS Safety Report 16035253 (Version 1)
Quarter: 2019Q1

REPORT INFORMATION
  Report Type: Spontaneous
  Country: US (occurrence: US)
  Receive Date: 20190305
  Receipt Date: 20190305
  Transmission Date: 20190418
  Serious: Yes (Other)
  Sender: FDA-Public Use
  Company Number: US-SA-2019SA056340

PATIENT
  Age: 43 Year
  Sex: Female

DRUGS (1)
  1. AUBAGIO [Suspect]
     Active Substance: TERIFLUNOMIDE
     Dosage: 14 MG, QD
     Dates: start: 2017

REACTIONS (5)
  - Toothache [Unknown]
  - Multiple sclerosis relapse [Unknown]
  - Pain [Unknown]
  - Dental caries [Unknown]
  - Facial pain [Unknown]

NARRATIVE: CASE EVENT DATE: 201902
